FAERS Safety Report 10546525 (Version 2)
Quarter: 2014Q4

REPORT INFORMATION
  Report Type: Spontaneous
  Country: US (occurrence: US)
  Receive Date: 20141027
  Receipt Date: 20141119
  Transmission Date: 20150529
  Serious: Yes (Hospitalization)
  Sender: FDA-Public Use
  Company Number: US-B.I. PHARMACEUTICALS,INC./RIDGEFIELD-2014-BI-50951BP

PATIENT
  Age: 47 Year
  Sex: Female
  Weight: 52.62 kg

DRUGS (3)
  1. AZATHIOPRINE. [Concomitant]
     Active Substance: AZATHIOPRINE
     Indication: SARCOIDOSIS
     Dosage: 150 MG
     Route: 048
     Dates: start: 2013
  2. SPIRIVA [Suspect]
     Active Substance: TIOTROPIUM BROMIDE MONOHYDRATE
     Indication: SARCOIDOSIS
     Dosage: 18 MCG
     Route: 055
     Dates: start: 2013
  3. PREDNISONE. [Concomitant]
     Active Substance: PREDNISONE
     Indication: SARCOIDOSIS
     Dosage: 30 MG
     Route: 048
     Dates: start: 2010

REACTIONS (3)
  - Sarcoidosis [Recovered/Resolved]
  - Off label use [Unknown]
  - Product quality issue [Unknown]

NARRATIVE: CASE EVENT DATE: 2013
